FAERS Safety Report 9265124 (Version 1)
Quarter: 2013Q2

REPORT INFORMATION
  Report Type: Spontaneous
  Country: US (occurrence: US)
  Receive Date: 20130501
  Receipt Date: 20130501
  Transmission Date: 20140414
  Serious: Yes (Other)
  Sender: FDA-Public Use
  Company Number: US-PFIZER INC-2013130539

PATIENT
  Age: 43 Year
  Sex: Male
  Weight: 91.16 kg

DRUGS (1)
  1. SOLU-MEDROL [Suspect]
     Indication: DERMATITIS CONTACT
     Dosage: 125 MG, UNK
     Route: 030

REACTIONS (3)
  - Convulsion [Unknown]
  - Presyncope [Unknown]
  - Hyperhidrosis [Unknown]
